FAERS Safety Report 24664360 (Version 2)
Quarter: 2025Q1

REPORT INFORMATION
  Report Type: Spontaneous
  Country: DE (occurrence: DE)
  Receive Date: 20241126
  Receipt Date: 20250110
  Transmission Date: 20250408
  Serious: Yes (Other)
  Sender: TEVA
  Company Number: DE-TEVA-VS-3256082

PATIENT
  Age: 70 Year
  Sex: Female

DRUGS (4)
  1. AJOVY [Suspect]
     Active Substance: FREMANEZUMAB-VFRM
     Indication: Migraine
     Dosage: AS NOW BEEN ADMINISTERED 14 TIMES,14 MONTHS AJOVY IN TOTAL.
     Route: 065
     Dates: start: 20230623, end: 20240902
  2. ZOLMITRIPTAN [Concomitant]
     Active Substance: ZOLMITRIPTAN
     Indication: Product used for unknown indication
  3. METOPROLOL [Concomitant]
     Active Substance: METOPROLOL
     Indication: Migraine prophylaxis
     Route: 065
  4. EUTHYROX [Concomitant]
     Active Substance: LEVOTHYROXINE SODIUM
     Indication: Autoimmune thyroiditis
     Route: 065

REACTIONS (3)
  - Hypertension [Unknown]
  - Inappropriate schedule of product administration [Unknown]
  - Seizure [Unknown]

NARRATIVE: CASE EVENT DATE: 20240901
